FAERS Safety Report 8515163-6 (Version None)
Quarter: 2012Q3

REPORT INFORMATION
  Report Type: 
  Country: None (occurrence: None)
  Receive Date: 20120717
  Receipt Date: 20120710
  Transmission Date: 20120928
  Serious: Yes (Other)
  Sender: FDA-Public Use
  Company Number: BR-GLAXOSMITHKLINE-A0976301A

PATIENT
  Sex: Female

DRUGS (3)
  1. AREDIA [Suspect]
     Indication: BREAST CANCER METASTATIC
     Route: 065
  2. LAPATINIB [Suspect]
     Indication: BREAST CANCER METASTATIC
     Route: 065
     Dates: start: 20110301
  3. TRASTUZUMAB [Suspect]
     Indication: BREAST CANCER METASTATIC
     Route: 065

REACTIONS (2)
  - MASS [None]
  - PANCREATITIS [None]
